FAERS Safety Report 17579280 (Version 1)
Quarter: 2020Q1

REPORT INFORMATION
  Report Type: Spontaneous
  Country: NL (occurrence: NL)
  Receive Date: 20200325
  Receipt Date: 20200325
  Transmission Date: 20200409
  Serious: Yes (Other)
  Sender: FDA-Public Use
  Company Number: NL-TEVA-2020-NL-1208969

PATIENT
  Sex: Female
  Weight: 69 kg

DRUGS (4)
  1. TRAMADOL. [Concomitant]
     Active Substance: TRAMADOL
     Dosage: CAPSULE, 50 MG (MILLIGRAM)
  2. ZOLEDRONINEZUUR [Suspect]
     Active Substance: ZOLEDRONIC ACID
     Indication: OSTEOPOROSIS
     Dosage: INFUSION LIQUID, 0.05 MG / ML (MILLIGRAMS PER MILLILITER), ONCE A YEAR, 5 MG
     Dates: start: 20200106, end: 20200106
  3. OMEPRAZOL [Concomitant]
     Active Substance: OMEPRAZOLE
     Dosage: GASTRO-RESISTANT TABLET, 20 MG (MILLIGRAMS)
  4. CALCIUMCARBONAAT/COLECALCIFEROL [Concomitant]
     Dosage: CHEWABLE TABLET, 2.5 G (GRAM) / 800 UNITS

REACTIONS (1)
  - Atrial fibrillation [Not Recovered/Not Resolved]
